FAERS Safety Report 15334814 (Version 1)
Quarter: 2018Q3

REPORT INFORMATION
  Report Type: Spontaneous
  Country: US (occurrence: US)
  Receive Date: 20180827
  Receipt Date: 20180827
  Transmission Date: 20181010
  Serious: Yes (Death)
  Sender: FDA-Public Use
  Company Number: None

PATIENT
  Age: 95 Year
  Sex: Female

DRUGS (2)
  1. ZARXIO [Suspect]
     Active Substance: FILGRASTIM-SNDZ
     Indication: PANCREATIC CARCINOMA
     Route: 058
     Dates: start: 20170905, end: 20180515
  2. PROCRIT [Suspect]
     Active Substance: ERYTHROPOIETIN
     Indication: HAEMOLYTIC ANAEMIA
     Dosage: ?          OTHER DOSE:40,000 UNITS;?
     Route: 058
     Dates: start: 20140528, end: 20180515

REACTIONS (1)
  - Death [None]

NARRATIVE: CASE EVENT DATE: 20180605
